FAERS Safety Report 6755003-9 (Version None)
Quarter: 2010Q2

REPORT INFORMATION
  Report Type: 
  Country: None (occurrence: None)
  Receive Date: 20100602
  Receipt Date: 20100524
  Transmission Date: 20101027
  Serious: Yes (Death, Hospitalization)
  Sender: FDA-Public Use
  Company Number: 012092

PATIENT
  Sex: Female
  Weight: 54.6 kg

DRUGS (3)
  1. CIMZIA [Suspect]
     Indication: CROHN'S DISEASE
     Dosage: SUBCUTANEOUS
     Route: 058
     Dates: start: 20100210, end: 20100225
  2. PENTASA [Concomitant]
  3. COREG [Concomitant]

REACTIONS (35)
  - ABDOMINAL PAIN [None]
  - CARDIAC FAILURE [None]
  - CARDIOMYOPATHY [None]
  - DEPRESSION [None]
  - DIARRHOEA [None]
  - DISTURBANCE IN ATTENTION [None]
  - DIZZINESS [None]
  - DYSARTHRIA [None]
  - ENTEROCOCCAL INFECTION [None]
  - HAEMATOCRIT DECREASED [None]
  - HAEMOGLOBIN DECREASED [None]
  - HYPOTENSION [None]
  - INJECTION SITE REACTION [None]
  - INTESTINAL FISTULA [None]
  - LABILE BLOOD PRESSURE [None]
  - LACTIC ACIDOSIS [None]
  - LEFT VENTRICULAR DYSFUNCTION [None]
  - MALNUTRITION [None]
  - MELAENA [None]
  - NAUSEA [None]
  - OVARIAN CYST [None]
  - PLEURAL EFFUSION [None]
  - PROTEUS INFECTION [None]
  - PYREXIA [None]
  - RESPIRATORY DISTRESS [None]
  - SEPSIS [None]
  - SINUS TACHYCARDIA [None]
  - SOMNOLENCE [None]
  - STREPTOCOCCAL BACTERAEMIA [None]
  - SWELLING FACE [None]
  - TOOTH FRACTURE [None]
  - TOOTHACHE [None]
  - TREATMENT NONCOMPLIANCE [None]
  - URINARY TRACT INFECTION [None]
  - VOMITING [None]
